FAERS Safety Report 6157859-X (Version None)
Quarter: 2009Q2

REPORT INFORMATION
  Report Type: 
  Country: None (occurrence: None)
  Receive Date: 20090414
  Receipt Date: 20090401
  Transmission Date: 20091009
  Serious: Yes (Hospitalization)
  Sender: FDA-Public Use
  Company Number: 1000005674

PATIENT
  Age: 87 Year
  Sex: Female

DRUGS (11)
  1. ESCITALOPRAM [Suspect]
     Indication: DEPRESSION
     Dosage: 10 MG (10 MG, 1 IN 1 D), ORAL
     Route: 048
  2. ASPIRIN [Suspect]
     Indication: VASCULAR DEMENTIA
     Dosage: 100 MG 9100 MG, 1 IN 1 D), ORAL
     Route: 048
     Dates: end: 20081023
  3. ASPIRIN [Suspect]
     Indication: VASCULAR DEMENTIA
     Dosage: 100 MG 9100 MG, 1 IN 1 D), ORAL
     Route: 048
     Dates: start: 20080101
  4. ARICEPT [Suspect]
     Indication: DEMENTIA ALZHEIMER'S TYPE
     Dosage: 5 MG (5 MG, 1 IN 1 D), ORAL
     Route: 048
     Dates: start: 20080701
  5. NOVONORM (TABLETS) [Concomitant]
  6. TRIATEC (TABLETS) [Concomitant]
  7. NORVASC [Concomitant]
  8. REMERON [Concomitant]
  9. LEPONEX (TABLETS) [Concomitant]
  10. TRANSIPEG (SOLUTION) [Concomitant]
  11. ACIDUM FOLICUM (TABLETS) [Concomitant]

REACTIONS (7)
  - GASTRIC ULCER [None]
  - GASTROINTESTINAL HAEMORRHAGE [None]
  - HAEMATEMESIS [None]
  - HAEMOGLOBIN DECREASED [None]
  - HIATUS HERNIA [None]
  - OESOPHAGEAL MUCOSAL HYPERPLASIA [None]
  - REFLUX OESOPHAGITIS [None]
